FAERS Safety Report 6308438-2 (Version None)
Quarter: 2009Q3

REPORT INFORMATION
  Report Type: 
  Country: None (occurrence: None)
  Receive Date: 20090813
  Receipt Date: 20090804
  Transmission Date: 20100115
  Serious: Yes (Other)
  Sender: FDA-Public Use
  Company Number: PHHY2009DE32977

PATIENT
  Age: 5 Year
  Sex: Female

DRUGS (1)
  1. GLEEVEC [Suspect]
     Indication: CHRONIC MYELOID LEUKAEMIA
     Dosage: UNK
     Dates: start: 20051001

REACTIONS (8)
  - BONE RESORPTION TEST ABNORMAL [None]
  - DEOXYPYRIDINOLINE URINE INCREASED [None]
  - GROWTH HORMONE DEFICIENCY [None]
  - GROWTH RETARDATION [None]
  - HIGH TURNOVER OSTEOPATHY [None]
  - OSTEOCALCIN INCREASED [None]
  - PYRIDINOLINE URINE INCREASED [None]
  - URINE CALCIUM INCREASED [None]
